FAERS Safety Report 10846403 (Version 1)
Quarter: 2015Q1

REPORT INFORMATION
  Report Type: Spontaneous
  Country: FI (occurrence: FI)
  Receive Date: 20150220
  Receipt Date: 20150220
  Transmission Date: 20150721
  Serious: Yes (Hospitalization)
  Sender: FDA-Public Use
  Company Number: FI-ABBVIE-15P-055-1348950-00

PATIENT
  Sex: Female

DRUGS (1)
  1. DUODOPA [Suspect]
     Active Substance: CARBIDOPA\LEVODOPA
     Indication: PARKINSON^S DISEASE
     Dosage: ACCORDING TO SEPARATE INSTRUCTIONS
     Route: 050
     Dates: start: 201403, end: 20140912

REACTIONS (3)
  - Catheter site discharge [Unknown]
  - Abdominal pain [Unknown]
  - Catheter site abscess [Unknown]

NARRATIVE: CASE EVENT DATE: 20140912
